FAERS Safety Report 20159493 (Version 1)
Quarter: 2021Q4

REPORT INFORMATION
  Report Type: Spontaneous
  Country: DE (occurrence: DE)
  Receive Date: 20211208
  Receipt Date: 20211208
  Transmission Date: 20220303
  Serious: Yes (Death, Hospitalization, Other)
  Sender: FDA-Public Use
  Company Number: None

PATIENT
  Age: 69 Year
  Sex: Female

DRUGS (2)
  1. DOCETAXEL [Suspect]
     Active Substance: DOCETAXEL
     Indication: Adenocarcinoma
     Dosage: DAY 1
     Route: 065
     Dates: start: 202012, end: 202102
  2. NINTEDANIB [Suspect]
     Active Substance: NINTEDANIB
     Indication: Adenocarcinoma
     Route: 065
     Dates: start: 202012

REACTIONS (2)
  - Neoplasm progression [Unknown]
  - Death [Fatal]
